APPROVED DRUG PRODUCT: BUDESONIDE
Active Ingredient: BUDESONIDE
Strength: 3MG
Dosage Form/Route: CAPSULE, DELAYED RELEASE;ORAL
Application: A090410 | Product #001 | TE Code: AB
Applicant: AUROBINDO PHARMA USA INC
Approved: May 16, 2011 | RLD: No | RS: No | Type: RX